FAERS Safety Report 6497508-4 (Version None)
Quarter: 2009Q4

REPORT INFORMATION
  Report Type: 
  Country: None (occurrence: None)
  Receive Date: 20091211
  Receipt Date: 20091126
  Transmission Date: 20100525
  Serious: Yes (Death, Hospitalization, Other)
  Sender: FDA-Public Use
  Company Number: 2009AP004843

PATIENT
  Age: 72 Year
  Sex: Male

DRUGS (9)
  1. SERTRALINE HYDROCHLORIDE (SERTRALINE HYDROCHLORIDE) 50 MG; UNKNOWN [Suspect]
     Indication: DEPRESSION
     Dosage: 50 MG
  2. AMANTADINE (AMANTADINE) 200 MG; UNKNOWN; BID 100 MG; UNKNOWN; QD [Suspect]
     Indication: PARKINSON'S DISEASE
     Dosage: 200 MG; BID
  3. BACLOFEN [Suspect]
     Indication: HICCUPS
     Dosage: 10 MG; BID
  4. BENSERAZIDE HYDROCHLORIDE (BENSERAZIDE HYDROCHLORIDE) 1 DF; UNKNOWN; B [Suspect]
     Indication: PARKINSON'S DISEASE
     Dosage: 1 DF; BID
  5. LEVODOPA (LEVODOPA) 1 DF; UNKNOWN; BID [Suspect]
     Indication: PARKINSON'S DISEASE
     Dosage: 1 DF; BID
  6. METOCLOPRAMIDE (METOCLORPRAMIDE) [Concomitant]
  7. CHLORPROMAZINE [Concomitant]
  8. HALOPERIDOL [Concomitant]
  9. LANSOPRAZOLE [Concomitant]

REACTIONS (12)
  - CEREBROVASCULAR ACCIDENT [None]
  - CIRCULATORY COLLAPSE [None]
  - COMPUTERISED TOMOGRAM ABNORMAL [None]
  - CONDITION AGGRAVATED [None]
  - FATIGUE [None]
  - HICCUPS [None]
  - HYPONATRAEMIA [None]
  - HYPOPHAGIA [None]
  - NEUROLOGICAL SYMPTOM [None]
  - ORTHOSTATIC HYPOTENSION [None]
  - POST PROCEDURAL COMPLICATION [None]
  - SLEEP DISORDER DUE TO GENERAL MEDICAL CONDITION, INSOMNIA TYPE [None]
